FAERS Safety Report 5788671-9 (Version None)
Quarter: 2008Q2

REPORT INFORMATION
  Report Type: 
  Country: None (occurrence: None)
  Receive Date: 20080626
  Receipt Date: 20080618
  Transmission Date: 20081010
  Serious: Yes (Other)
  Sender: FDA-Public Use
  Company Number: PHHY2008BR11763

PATIENT
  Age: 15 Year
  Sex: Male
  Weight: 82 kg

DRUGS (2)
  1. TRILEPTAL [Suspect]
     Indication: EPILEPSY
     Dosage: 300 MG, 1AND A HALF TABLET BID
  2. TRILEPTAL [Suspect]
     Dosage: 300 MG, BID
     Dates: start: 20080327

REACTIONS (6)
  - ANXIETY [None]
  - CONVULSION [None]
  - DEPRESSED MOOD [None]
  - MOOD ALTERED [None]
  - NERVOUSNESS [None]
  - SPEECH DISORDER [None]
